FAERS Safety Report 4527753-6 (Version None)
Quarter: 2004Q4

REPORT INFORMATION
  Report Type: 
  Country: None (occurrence: None)
  Receive Date: 20041123
  Receipt Date: 20031022
  Transmission Date: 20050328
  Serious: Yes (Hospitalization, Other)
  Sender: FDA-Public Use
  Company Number: 2003037831

PATIENT
  Age: 51 Year
  Sex: Female
  Weight: 128.368 kg

DRUGS (12)
  1. LIPITOR [Suspect]
     Indication: BLOOD CHOLESTEROL INCREASED
     Dosage: (DAILY), ORAL
     Route: 048
     Dates: start: 20010901, end: 20030601
  2. METHADONE (METHADONE) [Suspect]
     Indication: MIGRAINE
     Dosage: ORAL
     Route: 048
     Dates: start: 20030101, end: 20030922
  3. NOVOLIN 20/80 (INSULIN HUMAN, INSULIN ISOPHANE, HUMAN BIOSYNTHETIC) [Concomitant]
  4. LISINOPRIL [Concomitant]
  5. SERETIDE MITE (FLUTICASONE PROPIONATE, SALMETEROL XINAFOATE) [Concomitant]
  6. LANSOPRAZOLE [Concomitant]
  7. CETIRIZINE HCL [Concomitant]
  8. TOPIRAMATE [Concomitant]
  9. SERTRALINE HCL [Concomitant]
  10. FEXOFENADINE HYDROCHLORIDE [Concomitant]
  11. SIMVASTATIN [Concomitant]
  12. ALENDRONATE SODIUM [Concomitant]

REACTIONS (11)
  - ABDOMINAL PAIN UPPER [None]
  - ARTHRALGIA [None]
  - FEELING COLD [None]
  - FEELING HOT [None]
  - HYPOTENSION [None]
  - MIGRAINE [None]
  - PNEUMONIA [None]
  - PYREXIA [None]
  - RESPIRATORY DISORDER [None]
  - SINUS DISORDER [None]
  - URINARY INCONTINENCE [None]
